FAERS Safety Report 7275550-3 (Version None)
Quarter: 2011Q1

REPORT INFORMATION
  Report Type: 
  Country: None (occurrence: None)
  Receive Date: 20110204
  Receipt Date: 20110124
  Transmission Date: 20110831
  Serious: Yes (Hospitalization)
  Sender: FDA-Public Use
  Company Number: US-JNJCH-2011002528

PATIENT
  Age: 87 Year
  Sex: Male
  Weight: 95.3 kg

DRUGS (6)
  1. LOVASTATIN [Concomitant]
     Indication: HYPERCHOLESTEROLAEMIA
     Dosage: TEXT:30MG UNSPECIFIED
     Route: 065
  2. GLIPIZIDE [Concomitant]
     Indication: DIABETES MELLITUS
     Dosage: TEXT:5MG UNSPECIFIED
     Route: 065
  3. OMEPRAZOLE [Concomitant]
     Indication: GASTROOESOPHAGEAL REFLUX DISEASE
     Dosage: TEXT:20MG UNSPECIFIED
     Route: 065
  4. BENADRYL [Suspect]
     Indication: NASOPHARYNGITIS
     Dosage: TEXT:2 TABLETS EVERY 6 HOURS
     Route: 048
     Dates: start: 20110109, end: 20110110
  5. TERAZOSIN [Concomitant]
     Indication: HYPERTENSION
     Dosage: TEXT:UNKNOWN
     Route: 065
  6. FUROSEMIDE [Concomitant]
     Indication: FLUID RETENTION
     Dosage: TEXT:20MG UNSPECIFIED
     Route: 065

REACTIONS (4)
  - FALL [None]
  - DISORIENTATION [None]
  - CERVICAL VERTEBRAL FRACTURE [None]
  - OFF LABEL USE [None]
